FAERS Safety Report 5241701-5 (Version None)
Quarter: 2007Q1

REPORT INFORMATION
  Report Type: 
  Country: None (occurrence: None)
  Receive Date: 20070220
  Receipt Date: 20070208
  Transmission Date: 20070707
  Serious: Yes (Hospitalization)
  Sender: FDA-Public Use
  Company Number: HQWYE064108FEB07

PATIENT
  Sex: Female

DRUGS (4)
  1. PANTOPRAZOLE SODIUM [Suspect]
     Indication: GASTROOESOPHAGEAL REFLUX DISEASE
     Route: 048
     Dates: start: 20070109, end: 20070101
  2. FUROSEMIDE [Concomitant]
     Indication: ESSENTIAL HYPERTENSION
     Route: 048
     Dates: start: 20061201
  3. FLUOXETINE [Concomitant]
     Indication: DEPRESSION
     Dosage: 20 MG - FREQUENCY UNSPECIFIED
     Route: 048
     Dates: start: 20060701
  4. CAPTOPRIL [Concomitant]
     Indication: ESSENTIAL HYPERTENSION
     Route: 048
     Dates: start: 20061101

REACTIONS (1)
  - ISCHAEMIC STROKE [None]
